FAERS Safety Report 10708498 (Version 1)
Quarter: 2015Q1

REPORT INFORMATION
  Report Type: Spontaneous
  Country: FR (occurrence: FR)
  Receive Date: 20150113
  Receipt Date: 20150113
  Transmission Date: 20150721
  Serious: Yes (Hospitalization)
  Sender: FDA-Public Use
  Company Number: FR-ASTRAZENECA-2015SE03342

PATIENT
  Age: 84 Year
  Sex: Male

DRUGS (6)
  1. CASODEX [Suspect]
     Active Substance: BICALUTAMIDE
     Route: 048
     Dates: start: 201311, end: 201312
  2. CASODEX [Suspect]
     Active Substance: BICALUTAMIDE
     Route: 048
     Dates: start: 201203, end: 201204
  3. DECAPEPTYL [Suspect]
     Active Substance: TRIPTORELIN ACETATE
     Route: 058
     Dates: start: 201305, end: 201305
  4. DECAPEPTYL [Suspect]
     Active Substance: TRIPTORELIN ACETATE
     Route: 058
     Dates: start: 201204, end: 201204
  5. DECAPEPTYL [Suspect]
     Active Substance: TRIPTORELIN ACETATE
     Route: 058
     Dates: start: 201312, end: 201312
  6. CASODEX [Suspect]
     Active Substance: BICALUTAMIDE
     Route: 048
     Dates: start: 201304, end: 201305

REACTIONS (5)
  - Mycosis fungoides [Unknown]
  - Rash pustular [Unknown]
  - Pruritus [Unknown]
  - Psoriasis [Not Recovered/Not Resolved]
  - Generalised erythema [Unknown]

NARRATIVE: CASE EVENT DATE: 2013
